FAERS Safety Report 13592326 (Version 1)
Quarter: 2017Q2

REPORT INFORMATION
  Report Type: Spontaneous
  Country: FR (occurrence: FR)
  Receive Date: 20170530
  Receipt Date: 20170530
  Transmission Date: 20170830
  Serious: Yes (Other)
  Sender: FDA-Public Use
  Company Number: FR-PFIZER INC-2017230766

PATIENT
  Age: 55 Year
  Sex: Male

DRUGS (8)
  1. CORTANCYL [Suspect]
     Active Substance: PREDNISONE
     Indication: GLOMERULONEPHRITIS
     Dosage: 70 MG, 1X/DAY
     Route: 048
     Dates: start: 200712
  2. CORTANCYL [Suspect]
     Active Substance: PREDNISONE
     Dosage: 5 MG, DAILY
  3. NEXEN [Concomitant]
     Active Substance: NIMESULIDE
     Indication: PAIN
  4. CORTANCYL [Suspect]
     Active Substance: PREDNISONE
     Dosage: 50 MG, DAILY
     Dates: start: 20080320
  5. KARDEGIC [Concomitant]
     Active Substance: ASPIRIN LYSINE
     Indication: ISCHAEMIC STROKE
     Dosage: 75 MG, 1X/DAY
     Route: 048
  6. SOLU-MEDROL [Suspect]
     Active Substance: METHYLPREDNISOLONE SODIUM SUCCINATE
     Indication: GLOMERULONEPHRITIS
     Dosage: 500 MG, SINGLE
     Route: 048
     Dates: start: 200712, end: 200712
  7. SOLU-MEDROL [Suspect]
     Active Substance: METHYLPREDNISOLONE SODIUM SUCCINATE
     Dosage: 750 MG, 1X/DAY
     Route: 048
     Dates: start: 200712, end: 200712
  8. LESCOL [Concomitant]
     Active Substance: FLUVASTATIN SODIUM
     Indication: HYPERCHOLESTEROLAEMIA
     Dosage: 80 MG, 1X/DAY
     Route: 048

REACTIONS (1)
  - Diabetes mellitus [Not Recovered/Not Resolved]

NARRATIVE: CASE EVENT DATE: 200712
